FAERS Safety Report 19755758 (Version 2)
Quarter: 2021Q3

REPORT INFORMATION
  Report Type: Report from Study
  Country: IE (occurrence: IE)
  Receive Date: 20210827
  Receipt Date: 20210901
  Transmission Date: 20211014
  Serious: Yes (Hospitalization, Other)
  Sender: FDA-Public Use
  Company Number: IE-PFIZER INC-202101065349

PATIENT
  Weight: 37.8 kg

DRUGS (9)
  1. NORETHISTERONE [Concomitant]
     Active Substance: NORETHINDRONE
     Indication: PROGESTIN THERAPY
     Dosage: 5 MG, 3X/DAY
     Dates: start: 20210723, end: 20210730
  2. MOVICOL [Concomitant]
     Active Substance: POLYETHYLENE GLYCOL 3350\POTASSIUM CHLORIDE\SODIUM BICARBONATE\SODIUM CHLORIDE
     Indication: LAXATIVE SUPPORTIVE CARE
     Dosage: UNK, 2X/DAY
     Dates: start: 20210726, end: 20210730
  3. ORAMORPH SR SUSTAINED RELEASE [Concomitant]
     Active Substance: MORPHINE SULFATE
     Indication: ANALGESIC THERAPY
     Dosage: 7.5 MG, EVERY 4?6 HOURS
     Dates: start: 20210719, end: 20210730
  4. MITOXANTRONE HCL [Suspect]
     Active Substance: MITOXANTRONE HYDROCHLORIDE
     Indication: ACUTE MYELOID LEUKAEMIA
     Dosage: 15 MG/M2, 1X/DAY
     Route: 042
     Dates: start: 20210720, end: 20210723
  5. AMBISOME [Concomitant]
     Active Substance: AMPHOTERICIN B
     Indication: ANTIFUNGAL TREATMENT
     Dosage: 38 MG, CYCLIC
     Dates: start: 20210726, end: 20210730
  6. METHYLPHENIDATE. [Concomitant]
     Active Substance: METHYLPHENIDATE
     Indication: ATTENTION DEFICIT HYPERACTIVITY DISORDER
     Dosage: 30 MG, 1X/DAY
     Dates: start: 20210718
  7. HEPSAL [Concomitant]
     Active Substance: HEPARIN SODIUM
     Indication: ANTICOAGULANT THERAPY
     Dosage: 2.5 MG, Q.L./PRN
     Dates: start: 20210721, end: 20210730
  8. GEMTUZUMAB OZOGAMICIN [Suspect]
     Active Substance: GEMTUZUMAB OZOGAMICIN
     Indication: ACUTE MYELOID LEUKAEMIA
     Dosage: 3.8 MG
     Route: 042
     Dates: start: 20210723, end: 20210723
  9. ONDANSETRON [Concomitant]
     Active Substance: ONDANSETRON
     Indication: ANTIEMETIC SUPPORTIVE CARE
     Dosage: 6 MG, 3X/DAY
     Dates: start: 20210726, end: 20210730

REACTIONS (2)
  - Rash maculo-papular [Recovered/Resolved]
  - Febrile neutropenia [Recovered/Resolved]

NARRATIVE: CASE EVENT DATE: 20210813
